FAERS Safety Report 4555450-X (Version None)
Quarter: 2004Q4

REPORT INFORMATION
  Report Type: 
  Country: None (occurrence: None)
  Receive Date: 20041220
  Receipt Date: 20040405
  Transmission Date: 20050328
  Serious: Yes (Hospitalization)
  Sender: FDA-Public Use
  Company Number: US-JNJFOC-20040304677

PATIENT
  Age: 52 Year
  Sex: Male
  Weight: 83.9154 kg

DRUGS (4)
  1. RETAVASE (RETEPLASE) LYOPHILIZED POWDER [Suspect]
     Indication: THROMBOSIS
     Dosage: INTRAVENOUS
     Route: 042
     Dates: start: 20040301
  2. LIPITOR [Concomitant]
  3. WARFARIN SODIUM [Concomitant]
  4. COUMADIN [Concomitant]

REACTIONS (2)
  - HAEMATURIA [None]
  - HAEMORRHAGE [None]
